FAERS Safety Report 8159999-2 (Version None)
Quarter: 2012Q1

REPORT INFORMATION
  Report Type: 
  Country: None (occurrence: None)
  Receive Date: 20120223
  Receipt Date: 20120220
  Transmission Date: 20120608
  Serious: Yes (Death)
  Sender: FDA-Public Use
  Company Number: US-GLAXOSMITHKLINE-A0966606A

PATIENT
  Age: 48 Year
  Sex: Male

DRUGS (1)
  1. ARIXTRA [Suspect]
     Indication: PRODUCT USED FOR UNKNOWN INDICATION
     Dosage: 7.5MG SINGLE DOSE
     Route: 042

REACTIONS (4)
  - CEREBROVASCULAR ACCIDENT [None]
  - PNEUMONIA [None]
  - DEATH [None]
  - PANCREATIC CARCINOMA [None]
